FAERS Safety Report 5952568-1 (Version None)
Quarter: 2008Q4

REPORT INFORMATION
  Report Type: 
  Country: None (occurrence: None)
  Receive Date: 20081029
  Receipt Date: 20080508
  Transmission Date: 20090506
  Serious: Yes (Other)
  Sender: FDA-Public Use
  Company Number: 48215

PATIENT
  Sex: Female

DRUGS (2)
  1. METHOTREXATE [Suspect]
     Indication: PSORIASIS
     Dosage: 0.8ML WEEKLY; SWITCHED TO 1ML WEEKLY
     Dates: start: 20070301, end: 20080201
  2. METHOTREXATE [Suspect]
     Indication: PSORIATIC ARTHROPATHY
     Dosage: 0.8ML WEEKLY; SWITCHED TO 1ML WEEKLY
     Dates: start: 20070301, end: 20080201

REACTIONS (1)
  - ALOPECIA [None]
